FAERS Safety Report 15328481 (Version 8)
Quarter: 2019Q3

REPORT INFORMATION
  Report Type: Report from Study
  Country: KR (occurrence: KR)
  Receive Date: 20180829
  Receipt Date: 20190916
  Transmission Date: 20191004
  Serious: Yes (Hospitalization, Other)
  Sender: FDA-Public Use
  Company Number: KR-ROCHE-2133035

PATIENT
  Age: 51 Year
  Sex: Female
  Weight: 51.5 kg

DRUGS (25)
  1. KANARB [Concomitant]
     Route: 048
     Dates: start: 20180517
  2. TRASTUZUMAB EMTANSINE [Suspect]
     Active Substance: ADO-TRASTUZUMAB EMTANSINE
     Route: 042
     Dates: start: 20180608
  3. ULCERMIN [SUCRALFATE] [Concomitant]
     Indication: PROPHYLAXIS
     Route: 048
     Dates: start: 20180709
  4. SOLETON [Concomitant]
     Active Substance: ZALTOPROFEN
     Route: 048
     Dates: start: 20190222, end: 20190228
  5. STILLEN [Concomitant]
     Route: 048
     Dates: start: 20190222, end: 20190228
  6. ULTRACET [Concomitant]
     Active Substance: ACETAMINOPHEN\TRAMADOL HYDROCHLORIDE
     Route: 048
     Dates: start: 20190222
  7. URSA [Concomitant]
     Active Substance: URSODIOL
     Indication: JAUNDICE
     Route: 048
     Dates: start: 20180517
  8. COUGH SYRUP [AMMONIUM CHLORIDE;CHLORPHENAMINE MALEATE;DIHYDROCODEINE B [Concomitant]
     Indication: COUGH
     Route: 048
     Dates: start: 20180517
  9. TRIDOL [Concomitant]
     Active Substance: TRAMADOL HYDROCHLORIDE
     Route: 048
     Dates: start: 20180523, end: 20180525
  10. TRASTUZUMAB EMTANSINE [Suspect]
     Active Substance: ADO-TRASTUZUMAB EMTANSINE
     Indication: BREAST CANCER METASTATIC
     Route: 042
     Dates: start: 20180517
  11. TRASTUZUMAB EMTANSINE [Suspect]
     Active Substance: ADO-TRASTUZUMAB EMTANSINE
     Route: 042
     Dates: start: 20181023
  12. TRASTUZUMAB EMTANSINE [Suspect]
     Active Substance: ADO-TRASTUZUMAB EMTANSINE
     Route: 042
     Dates: start: 20190115
  13. LANSTON [Concomitant]
     Active Substance: LANSOPRAZOLE
     Indication: PROPHYLAXIS
     Route: 048
     Dates: start: 20180517
  14. NESP [Concomitant]
     Active Substance: DARBEPOETIN ALFA
     Indication: ANAEMIA
     Dosage: 360 MCG
     Route: 042
     Dates: start: 20180606
  15. CONCOR [Concomitant]
     Active Substance: BISOPROLOL FUMARATE
  16. TRASTUZUMAB EMTANSINE [Suspect]
     Active Substance: ADO-TRASTUZUMAB EMTANSINE
     Route: 042
     Dates: start: 20180710
  17. TRASTUZUMAB EMTANSINE [Suspect]
     Active Substance: ADO-TRASTUZUMAB EMTANSINE
     Route: 042
     Dates: start: 20180805
  18. SODIUM SELENITE [Concomitant]
     Active Substance: SODIUM SELENITE
     Dosage: 400 MCG
     Route: 042
     Dates: start: 20180517
  19. TRAMADOL HCL [Concomitant]
     Active Substance: TRAMADOL HYDROCHLORIDE
     Indication: PAIN
     Route: 042
     Dates: start: 20180607, end: 20180611
  20. TRASTUZUMAB EMTANSINE [Suspect]
     Active Substance: ADO-TRASTUZUMAB EMTANSINE
     Route: 042
     Dates: start: 20180922
  21. PERINDOPRIL [Concomitant]
     Active Substance: PERINDOPRIL
     Route: 048
     Dates: start: 20180709
  22. TRASTUZUMAB EMTANSINE [Suspect]
     Active Substance: ADO-TRASTUZUMAB EMTANSINE
     Route: 042
     Dates: start: 20190305
  23. TRASTUZUMAB EMTANSINE [Suspect]
     Active Substance: ADO-TRASTUZUMAB EMTANSINE
     Route: 042
     Dates: start: 20190416
  24. DICAMAX [Concomitant]
     Route: 048
     Dates: start: 20180517
  25. FOIPAN [Concomitant]
     Active Substance: CAMOSTAT MESYLATE
     Route: 048
     Dates: start: 20180528

REACTIONS (8)
  - Abdominal pain upper [Recovered/Resolved]
  - Left ventricular dysfunction [Recovering/Resolving]
  - Postmastectomy lymphoedema syndrome [Recovered/Resolved]
  - Thrombocytopenia [Recovering/Resolving]
  - Lymphangitis [Recovered/Resolved]
  - Pleural effusion [Recovering/Resolving]
  - Cholangitis [Recovering/Resolving]
  - Abdominal distension [Recovered/Resolved]

NARRATIVE: CASE EVENT DATE: 20180518
